FAERS Safety Report 20064144 (Version 1)
Quarter: 2021Q4

REPORT INFORMATION
  Report Type: Spontaneous
  Country: FR (occurrence: None)
  Receive Date: 20211112
  Receipt Date: 20211112
  Transmission Date: 20220303
  Serious: Yes (Other)
  Sender: FDA-Public Use
  Company Number: None

PATIENT
  Age: 61 Year
  Sex: Female
  Weight: 80 kg

DRUGS (4)
  1. ONDANSETRON [Suspect]
     Active Substance: ONDANSETRON
     Indication: Nausea
     Dosage: 16MG/J // 16MG/D
     Route: 041
     Dates: start: 20210927, end: 20211004
  2. FILGRASTIM [Suspect]
     Active Substance: FILGRASTIM
     Indication: Neutropenia
     Dosage: 48MUI/J // 48MUI/D
     Route: 058
     Dates: start: 20211001, end: 20211009
  3. VALACYCLOVIR HYDROCHLORIDE [Suspect]
     Active Substance: VALACYCLOVIR HYDROCHLORIDE
     Indication: Antiviral prophylaxis
     Dosage: 500MG/J // 500MG/D
     Route: 048
     Dates: start: 20210927, end: 20211005
  4. THIOTEPA [Suspect]
     Active Substance: THIOTEPA
     Indication: Central nervous system lymphoma
     Route: 042
     Dates: start: 20210924, end: 20210925

REACTIONS (1)
  - Toxic erythema of chemotherapy [Recovering/Resolving]

NARRATIVE: CASE EVENT DATE: 20211004
